FAERS Safety Report 18445561 (Version 2)
Quarter: 2020Q4

REPORT INFORMATION
  Report Type: Spontaneous
  Country: US (occurrence: US)
  Receive Date: 20201030
  Receipt Date: 20201203
  Transmission Date: 20210114
  Serious: Yes (Other)
  Sender: FDA-Public Use
  Company Number: US-PFIZER INC-2020420603

PATIENT
  Age: 87 Year
  Sex: Female

DRUGS (1)
  1. IBRANCE [Suspect]
     Active Substance: PALBOCICLIB
     Dosage: 100 MG

REACTIONS (7)
  - Fatigue [Unknown]
  - Pruritus [Unknown]
  - Weight decreased [Unknown]
  - Deafness [Unknown]
  - Psychiatric symptom [Unknown]
  - Red blood cell count decreased [Unknown]
  - Decreased appetite [Unknown]
